FAERS Safety Report 7009800-5 (Version None)
Quarter: 2010Q3

REPORT INFORMATION
  Report Type: 
  Country: None (occurrence: None)
  Receive Date: 20100923
  Receipt Date: 20100913
  Transmission Date: 20110219
  Serious: Yes (Hospitalization, Other)
  Sender: FDA-Public Use
  Company Number: JP-ROCHE-711346

PATIENT
  Sex: Female

DRUGS (10)
  1. TOCILIZUMAB [Suspect]
     Indication: RHEUMATOID ARTHRITIS
     Route: 041
     Dates: start: 20081225, end: 20081225
  2. TOCILIZUMAB [Suspect]
     Route: 041
     Dates: start: 20090122, end: 20090122
  3. TOCILIZUMAB [Suspect]
     Route: 041
     Dates: start: 20090224, end: 20090224
  4. TOCILIZUMAB [Suspect]
     Route: 041
     Dates: start: 20090324, end: 20090324
  5. TOCILIZUMAB [Suspect]
     Route: 041
     Dates: start: 20090421, end: 20090421
  6. TOCILIZUMAB [Suspect]
     Route: 041
     Dates: start: 20090604
  7. METHOTREXATE [Concomitant]
     Dosage: FORM: PERORAL AGENT
     Route: 048
     Dates: end: 20090128
  8. MIZORIBINE [Concomitant]
     Route: 048
     Dates: start: 20090224
  9. PREDNISOLONE [Concomitant]
     Dosage: FORM: PERORAL AGENT
     Route: 048
     Dates: start: 20090130
  10. FOLIC ACID [Concomitant]
     Dosage: FORM: PERORAL AGENT
     Route: 048
     Dates: start: 20090130

REACTIONS (2)
  - INTERSTITIAL LUNG DISEASE [None]
  - PURULENCE [None]
